FAERS Safety Report 6711875-5 (Version None)
Quarter: 2010Q2

REPORT INFORMATION
  Report Type: 
  Country: None (occurrence: None)
  Receive Date: 20100505
  Receipt Date: 20100423
  Transmission Date: 20101027
  Serious: Yes (Hospitalization)
  Sender: FDA-Public Use
  Company Number: PT-ELI_LILLY_AND_COMPANY-PT201004006455

PATIENT
  Age: 37 Year
  Sex: Male

DRUGS (7)
  1. GEMZAR [Suspect]
     Indication: LUNG ADENOCARCINOMA
     Dosage: 133 G, UNKNOWN
     Route: 042
     Dates: start: 20100224, end: 20100101
  2. GEMZAR [Suspect]
     Dosage: 133 G, UNKNOWN
     Route: 042
     Dates: start: 20100101
  3. CISPLATIN [Concomitant]
     Dosage: UNK, UNKNOWN
     Route: 065
     Dates: start: 20100224
  4. DEXAMETHASONE [Concomitant]
     Dosage: UNK, UNKNOWN
     Route: 065
     Dates: start: 20100224
  5. GRANISETRON [Concomitant]
     Dosage: 1 MG, UNKNOWN
     Route: 042
     Dates: start: 20100224
  6. ZOLEDRONIC ACID [Concomitant]
     Dosage: UNK, UNKNOWN
     Route: 042
  7. BISOPROLOL FUMARATE [Concomitant]
     Dosage: UNK, UNKNOWN
     Route: 048

REACTIONS (1)
  - DEEP VEIN THROMBOSIS [None]
